FAERS Safety Report 10020674 (Version 1)
Quarter: 2013Q4

REPORT INFORMATION
  Report Type: Spontaneous
  Country: US (occurrence: None)
  Receive Date: 20131125
  Receipt Date: 20131125
  Transmission Date: 20140711
  Serious: Yes (Hospitalization)
  Sender: FDA-Public Use
  Company Number: CIO13053600

PATIENT
  Age: 24 Year
  Sex: Female
  Weight: 59 kg

DRUGS (1)
  1. DAWN HANDDISH BASE LIQUSUPCMPT ANTIBAC APPLE BLOSSOM(TRICLOSAN 0.11%) UNSPECIFIED [Suspect]
     Dosage: 2-3 DROPS IN CONTAINTER OF WATER, TOPICAL
     Route: 061
     Dates: start: 20130831, end: 20130831

REACTIONS (4)
  - Burns first degree [None]
  - Accidental exposure to product [None]
  - Exposure via direct contact [None]
  - Intentional drug misuse [None]
